FAERS Safety Report 9549156 (Version 3)
Quarter: 2016Q2

REPORT INFORMATION
  Report Type: Report from Study
  Country: US (occurrence: US)
  Receive Date: 20130924
  Receipt Date: 20160623
  Transmission Date: 20160815
  Serious: Yes (Hospitalization)
  Sender: FDA-Public Use
  Company Number: US-ROCHE-1279822

PATIENT
  Age: 20 Year
  Sex: Female
  Weight: 99.88 kg

DRUGS (16)
  1. XOLAIR [Suspect]
     Active Substance: OMALIZUMAB
     Indication: ASTHMA
     Route: 058
  2. PREDNISONE. [Concomitant]
     Active Substance: PREDNISONE
     Dosage: FOR 2 DAYS
     Route: 048
  3. ADVAIR HFA [Concomitant]
     Active Substance: FLUTICASONE PROPIONATE\SALMETEROL XINAFOATE
     Indication: ASTHMA
     Dosage: 250-50MCG PER DOSE, 500/50
     Route: 055
  4. METHOTREXATE [Concomitant]
     Active Substance: METHOTREXATE
     Dosage: 2 PILLS
     Route: 048
  5. SINGULAIR [Concomitant]
     Active Substance: MONTELUKAST SODIUM
  6. XOLAIR [Suspect]
     Active Substance: OMALIZUMAB
     Indication: ASTHMA
     Route: 058
  7. PREDNISONE. [Concomitant]
     Active Substance: PREDNISONE
     Dosage: 60MG FOR 2 DAY, THEN
     Route: 048
  8. ALBUTEROL SULFATE. [Concomitant]
     Active Substance: ALBUTEROL SULFATE
     Dosage: 5MG/ML  0.5 PERCENT INHALATION
     Route: 065
  9. PREDNISONE. [Concomitant]
     Active Substance: PREDNISONE
     Dosage: 40MG FOR 2 DAYS, THEN
     Route: 048
  10. PREDNISONE. [Concomitant]
     Active Substance: PREDNISONE
     Dosage: 30MG FOR 2 DAYS, THEN
     Route: 048
  11. METHOTREXATE [Concomitant]
     Active Substance: METHOTREXATE
     Dosage: INCREASE BY 1 PILL WKLY UNTIL 6 PILL WEEKLY
     Route: 048
  12. VENTOLIN HFA [Concomitant]
     Active Substance: ALBUTEROL SULFATE
     Dosage: 2 INHAL PRN
     Route: 065
  13. PREDNISONE. [Concomitant]
     Active Substance: PREDNISONE
     Dosage: 20MG FOR 2 DAYS, THEN
     Route: 048
  14. ADVAIR HFA [Concomitant]
     Active Substance: FLUTICASONE PROPIONATE\SALMETEROL XINAFOATE
     Dosage: ONE INHALE BID
     Route: 065
  15. VENTOLIN HFA [Concomitant]
     Active Substance: ALBUTEROL SULFATE
     Indication: ASTHMA
     Dosage: 108 (90BASESD)MCG PER ACT
     Route: 065
  16. PREDNISONE. [Concomitant]
     Active Substance: PREDNISONE
     Dosage: 50MG FOR 2 DAYS, THEN
     Route: 048

REACTIONS (4)
  - Dyspnoea [Unknown]
  - Asthma [Unknown]
  - Respiratory arrest [Unknown]
  - Wheezing [Unknown]

NARRATIVE: CASE EVENT DATE: 201307
